FAERS Safety Report 11296086 (Version 1)
Quarter: 2015Q3

REPORT INFORMATION
  Report Type: Spontaneous
  Country: US (occurrence: None)
  Receive Date: 20150722
  Receipt Date: 20150722
  Transmission Date: 20151125
  Serious: No
  Sender: FDA-Public Use
  Company Number: None

PATIENT
  Age: 67 Year
  Sex: Female
  Weight: 76.2 kg

DRUGS (2)
  1. ORENCIA [Concomitant]
     Active Substance: ABATACEPT
  2. XELJANZ [Suspect]
     Active Substance: TOFACITINIB CITRATE
     Indication: RHEUMATOID ARTHRITIS
     Route: 048
     Dates: start: 20140630

REACTIONS (3)
  - Fatigue [None]
  - Burning sensation [None]
  - Paraesthesia oral [None]

NARRATIVE: CASE EVENT DATE: 20150718
